FAERS Safety Report 8253367-0 (Version None)
Quarter: 2012Q2

REPORT INFORMATION
  Report Type: 
  Country: None (occurrence: None)
  Receive Date: 20120402
  Receipt Date: 20120312
  Transmission Date: 20120825
  Serious: No
  Sender: FDA-Public Use
  Company Number: US-AMGEN-USASP2012016058

PATIENT
  Age: 26 Year
  Sex: Male

DRUGS (1)
  1. ENBREL [Suspect]
     Indication: ANKYLOSING SPONDYLITIS
     Dosage: 50 MG, QWK
     Dates: start: 20111201

REACTIONS (6)
  - FATIGUE [None]
  - PYREXIA [None]
  - ABNORMAL LOSS OF WEIGHT [None]
  - COUGH [None]
  - HYPERHIDROSIS [None]
  - ABDOMINAL PAIN [None]
